FAERS Safety Report 13292210 (Version 1)
Quarter: 2017Q1

REPORT INFORMATION
  Report Type: Spontaneous
  Country: CA (occurrence: CA)
  Receive Date: 20170303
  Receipt Date: 20170303
  Transmission Date: 20170428
  Serious: Yes (Disabling)
  Sender: FDA-Public Use
  Company Number: CA-TEVA-745268ACC

PATIENT
  Age: 66 Year
  Sex: Male

DRUGS (2)
  1. SERTRALINE [Suspect]
     Active Substance: SERTRALINE HYDROCHLORIDE
     Indication: ANXIETY
  2. SERTRALINE [Suspect]
     Active Substance: SERTRALINE HYDROCHLORIDE
     Indication: DEPRESSION
     Dosage: 25 MILLIGRAM DAILY;

REACTIONS (4)
  - Abdominal distension [Unknown]
  - Flatulence [Unknown]
  - Diarrhoea [Unknown]
  - Gastrointestinal disorder [Unknown]
